FAERS Safety Report 8604502-3 (Version None)
Quarter: 2012Q3

REPORT INFORMATION
  Report Type: 
  Country: None (occurrence: None)
  Receive Date: 20120820
  Receipt Date: 20120813
  Transmission Date: 20120928
  Serious: Yes (Life-Threatening, Hospitalization)
  Sender: FDA-Public Use
  Company Number: US-JNJFOC-20120610898

PATIENT
  Sex: Male
  Weight: 113.4 kg

DRUGS (8)
  1. STELARA [Suspect]
     Dosage: 3RD, 4TH AND 5TH INJECTION
     Route: 058
     Dates: start: 20100101, end: 20110101
  2. STELARA [Suspect]
     Indication: PSORIASIS
     Dosage: 2ND INJECTION
     Route: 058
     Dates: start: 20100812, end: 20100812
  3. STELARA [Suspect]
     Dosage: 6TH INJECTION
     Route: 058
     Dates: start: 20110728, end: 20110728
  4. STELARA [Suspect]
     Dosage: 1ST INJECTION
     Route: 058
     Dates: start: 20100714, end: 20100714
  5. STELARA [Suspect]
     Dosage: 6TH INJECTION
     Route: 058
     Dates: start: 20110728, end: 20110728
  6. STELARA [Suspect]
     Dosage: 2ND INJECTION
     Route: 058
     Dates: start: 20100812, end: 20100812
  7. STELARA [Suspect]
     Dosage: 1ST INJECTION
     Route: 058
     Dates: start: 20100714, end: 20100714
  8. STELARA [Suspect]
     Dosage: 3RD, 4TH AND 5TH INJECTION
     Route: 058
     Dates: start: 20100101, end: 20110101

REACTIONS (1)
  - GUILLAIN-BARRE SYNDROME [None]
